FAERS Safety Report 21347949 (Version 2)
Quarter: 2024Q3

REPORT INFORMATION
  Report Type: Report from Study
  Country: DE (occurrence: DE)
  Receive Date: 20220919
  Receipt Date: 20240917
  Transmission Date: 20241017
  Serious: No
  Sender: ROCHE
  Company Number: DE-ROCHE-2893276

PATIENT
  Age: 30 Year
  Sex: Female
  Weight: 56.0 kg

DRUGS (19)
  1. OCRELIZUMAB [Suspect]
     Active Substance: OCRELIZUMAB
     Indication: Relapsing multiple sclerosis
     Dosage: RECENT DOSE ON 25/JAN/2021
     Route: 042
     Dates: start: 20210111, end: 20210125
  2. OCRELIZUMAB [Suspect]
     Active Substance: OCRELIZUMAB
     Route: 042
     Dates: start: 20210802
  3. COMIRNATY [Concomitant]
     Indication: COVID-19 immunisation
     Route: 030
     Dates: start: 20210428, end: 20210428
  4. COMIRNATY [Concomitant]
     Route: 030
     Dates: start: 20210611, end: 20210611
  5. AGNUS CASTUS [Concomitant]
     Indication: Menstrual discomfort
     Route: 048
  6. IBUPROFEN [Concomitant]
     Active Substance: IBUPROFEN
     Indication: Headache
     Dosage: FREQUENCY TEXT:AS REQUIRED
     Route: 048
     Dates: start: 20210111, end: 20210121
  7. IBUPROFEN [Concomitant]
     Active Substance: IBUPROFEN
     Route: 048
     Dates: start: 20210125, end: 20210125
  8. IBUPROFEN [Concomitant]
     Active Substance: IBUPROFEN
     Dosage: FREQUENCY TEXT:AS REQUIRED
     Route: 048
  9. ESTROGENS [Concomitant]
     Active Substance: ESTROGENS
     Dosage: DEFINITION OF THE INTERVAL: AS REQUIRED
     Route: 067
     Dates: start: 202110
  10. MAGNESIUM [Concomitant]
     Active Substance: MAGNESIUM
     Route: 048
     Dates: start: 202107, end: 202207
  11. CIMETIDINE [Concomitant]
     Active Substance: CIMETIDINE
     Indication: Premedication
     Route: 042
     Dates: start: 20210111
  12. ZOPICLONE [Concomitant]
     Active Substance: ZOPICLONE
     Indication: Depression
     Dosage: DEFINITION OF THE INTERVAL: AS REQUIRED
     Route: 048
     Dates: start: 20210104
  13. CALCIUM [Concomitant]
     Active Substance: CALCIUM
     Route: 048
     Dates: start: 202107, end: 202207
  14. ACETAMINOPHEN [Concomitant]
     Active Substance: ACETAMINOPHEN
     Route: 048
     Dates: start: 20210125, end: 20210125
  15. PFIZER-BIONTECH COVID-19 VACCINE [Concomitant]
     Active Substance: TOZINAMERAN
     Route: 030
     Dates: start: 20211221, end: 20211221
  16. DOXEPIN HYDROCHLORIDE [Concomitant]
     Active Substance: DOXEPIN HYDROCHLORIDE
     Indication: Headache
     Dosage: DEFINITION OF THE INTERVAL: AS REQUIRED
     Route: 048
  17. DIMETHYL FUMARATE [Concomitant]
     Active Substance: DIMETHYL FUMARATE
     Dates: start: 2014, end: 202010
  18. INTERFERON BETA-1A [Concomitant]
     Active Substance: INTERFERON BETA-1A
     Dates: start: 201010, end: 2014
  19. DOXEPIN [Concomitant]
     Active Substance: DOXEPIN
     Dosage: DEFINITION OF THE INTERVAL: AS REQUIRED
     Route: 048
     Dates: start: 20210104, end: 202112

REACTIONS (3)
  - Urinary tract infection [Recovered/Resolved]
  - Osteochondrosis [Unknown]
  - COVID-19 [Recovered/Resolved]

NARRATIVE: CASE EVENT DATE: 20210118
